FAERS Safety Report 23545950 (Version 1)
Quarter: 2024Q1

REPORT INFORMATION
  Report Type: Spontaneous
  Country: US (occurrence: None)
  Receive Date: 20240219
  Receipt Date: 20240219
  Transmission Date: 20240409
  Serious: No
  Sender: FDA-Public Use
  Company Number: None

PATIENT
  Age: 74 Year
  Sex: Female
  Weight: 92.53 kg

DRUGS (2)
  1. TREMFYA [Suspect]
     Active Substance: GUSELKUMAB
     Indication: Psoriasis
     Dosage: FREQUENCY : MONTHLY;?
     Route: 058
     Dates: start: 201903
  2. TREMFYA [Suspect]
     Active Substance: GUSELKUMAB
     Indication: Spinal osteoarthritis

REACTIONS (2)
  - Pharyngitis streptococcal [None]
  - Therapy interrupted [None]
